FAERS Safety Report 23822443 (Version 1)
Quarter: 2024Q2

REPORT INFORMATION
  Report Type: Spontaneous
  Country: US (occurrence: None)
  Receive Date: 20240504
  Receipt Date: 20240504
  Transmission Date: 20240716
  Serious: Yes (Hospitalization)
  Sender: FDA-Public Use
  Company Number: None

PATIENT
  Age: 74 Year
  Sex: Male
  Weight: 93 kg

DRUGS (1)
  1. ROSUVASTATIN CALCIUM [Suspect]
     Active Substance: ROSUVASTATIN CALCIUM
     Indication: Hyperlipidaemia
     Dosage: 40 MG EVERY DAY PO?
     Route: 048
     Dates: start: 20220924, end: 20221018

REACTIONS (3)
  - Asthenia [None]
  - Therapy cessation [None]
  - Rhabdomyolysis [None]

NARRATIVE: CASE EVENT DATE: 20221102
